FAERS Safety Report 22982183 (Version 2)
Quarter: 2025Q1

REPORT INFORMATION
  Report Type: Spontaneous
  Country: FR (occurrence: None)
  Receive Date: 20230926
  Receipt Date: 20250304
  Transmission Date: 20250409
  Serious: Yes (Other)
  Sender: ORION
  Company Number: FR-Orion Corporation ORION PHARMA-TREX2023-0201

PATIENT
  Age: 77 Year
  Sex: Male
  Weight: 62 kg

DRUGS (13)
  1. METHOTREXATE [Suspect]
     Active Substance: METHOTREXATE
     Indication: Product used for unknown indication
     Dates: start: 20141113, end: 20151105
  2. METHOTREXATE [Suspect]
     Active Substance: METHOTREXATE
     Dates: start: 20151105, end: 20171016
  3. METHOTREXATE [Suspect]
     Active Substance: METHOTREXATE
     Dates: start: 20221206
  4. METHOTREXATE [Suspect]
     Active Substance: METHOTREXATE
     Dates: start: 20221206
  5. METHOTREXATE [Suspect]
     Active Substance: METHOTREXATE
  6. METHOTREXATE [Suspect]
     Active Substance: METHOTREXATE
  7. METHOTREXATE [Suspect]
     Active Substance: METHOTREXATE
     Dates: start: 20171016, end: 20221206
  8. AMLODIPINE BESYLATE [Concomitant]
     Active Substance: AMLODIPINE BESYLATE
  9. METFORMIN HYDROCHLORIDE [Concomitant]
     Active Substance: METFORMIN HYDROCHLORIDE
  10. ALDARA [Concomitant]
     Active Substance: IMIQUIMOD
  11. ZOXAN [Concomitant]
  12. ASPIRIN [Concomitant]
     Active Substance: ASPIRIN
  13. KIOVIG [Concomitant]
     Active Substance: HUMAN IMMUNOGLOBULIN G

REACTIONS (1)
  - Prostate cancer [Not Recovered/Not Resolved]

NARRATIVE: CASE EVENT DATE: 20230201
